FAERS Safety Report 8851876 (Version 2)
Quarter: 2012Q4

REPORT INFORMATION
  Report Type: 
  Country: US (occurrence: US)
  Receive Date: 20121022
  Receipt Date: 20121119
  Transmission Date: 20130627
  Serious: Yes (Other)
  Sender: FDA-Public Use
  Company Number: US-PFIZER INC-2012258340

PATIENT
  Age: 60 Year
  Sex: Male
  Weight: 86.62 kg

DRUGS (7)
  1. VIAGRA [Suspect]
     Indication: ERECTILE DYSFUNCTION
     Dosage: 100 mg, as needed
     Route: 048
  2. VIAGRA [Suspect]
     Dosage: UNK, as needed
     Route: 048
  3. SIMVASTATIN [Concomitant]
     Dosage: 20 mg, 1x/day
  4. LISINOPRIL [Concomitant]
     Dosage: 40 mg, 1x/day
  5. HYDROCHLOROTHIAZIDE [Concomitant]
     Dosage: 12.5 mg, 1x/day
  6. AMLODIPINE [Concomitant]
     Dosage: 10 mg, 1x/day
  7. GABAPENTIN [Concomitant]
     Dosage: 300 mg, 3x/day

REACTIONS (1)
  - Diabetes mellitus [Unknown]
